FAERS Safety Report 5793275-8 (Version None)
Quarter: 2008Q2

REPORT INFORMATION
  Report Type: 
  Country: None (occurrence: None)
  Receive Date: 20080626
  Receipt Date: 20080626
  Transmission Date: 20081010
  Serious: Yes (Hospitalization)
  Sender: FDA-Public Use
  Company Number: None

PATIENT
  Age: 80 Year
  Sex: Female
  Weight: 64.5 kg

DRUGS (5)
  1. TAXOTERE [Suspect]
     Indication: BREAST CANCER STAGE II
     Dosage: 75MG/M2 OVER 1 HOUR IV, TWICE 2 WEEK PERIOD
     Route: 042
  2. CYTOXAN [Suspect]
     Dosage: 125MG- OVER 1 HOUR IV
     Route: 042
  3. MULTI-VITAMIN [Concomitant]
  4. SYNTHROID [Concomitant]
  5. CIPROFOXACIN [Concomitant]

REACTIONS (4)
  - CHEST DISCOMFORT [None]
  - DYSPNOEA EXERTIONAL [None]
  - EJECTION FRACTION DECREASED [None]
  - PLEURAL EFFUSION [None]
